FAERS Safety Report 16269345 (Version 1)
Quarter: 2019Q2

REPORT INFORMATION
  Report Type: Spontaneous
  Country: US (occurrence: US)
  Receive Date: 20190503
  Receipt Date: 20190503
  Transmission Date: 20190711
  Serious: Yes (Hospitalization)
  Sender: FDA-Public Use
  Company Number: US-TORRENT-00008523

PATIENT
  Sex: Female

DRUGS (1)
  1. LOSARTAN. [Suspect]
     Active Substance: LOSARTAN
     Indication: PRODUCT USED FOR UNKNOWN INDICATION
     Dosage: SINCE ONE AND HALF MONTH?OR ALMOST TWO MONTHS
     Dates: start: 2019

REACTIONS (7)
  - Joint swelling [Unknown]
  - Ill-defined disorder [Unknown]
  - Pneumonia [Unknown]
  - Feeling abnormal [Unknown]
  - Hyperhidrosis [Unknown]
  - Swelling face [Unknown]
  - Choking [Unknown]
